FAERS Safety Report 12016876 (Version 1)
Quarter: 2016Q1

REPORT INFORMATION
  Report Type: Spontaneous
  Country: US (occurrence: US)
  Receive Date: 20160205
  Receipt Date: 20160205
  Transmission Date: 20160526
  Serious: No
  Sender: FDA-Public Use
  Company Number: US-AMGEN-USASP2015139050

PATIENT
  Sex: Male

DRUGS (1)
  1. NEULASTA [Suspect]
     Active Substance: PEGFILGRASTIM
     Indication: PRODUCT USED FOR UNKNOWN INDICATION
     Dosage: UNK
     Route: 065

REACTIONS (6)
  - Application site bruise [Unknown]
  - Application site haemorrhage [Unknown]
  - Application site pain [Unknown]
  - Skin injury [Unknown]
  - Device issue [Unknown]
  - Application site discolouration [Unknown]

NARRATIVE: CASE EVENT DATE: 201512
